FAERS Safety Report 16420545 (Version 1)
Quarter: 2019Q2

REPORT INFORMATION
  Report Type: Report from Study
  Country: DE (occurrence: DE)
  Receive Date: 20190612
  Receipt Date: 20190612
  Transmission Date: 20190711
  Serious: Yes (Life-Threatening, Hospitalization)
  Sender: FDA-Public Use
  Company Number: DE-ASTELLAS-2019US016883

PATIENT
  Age: 83 Year
  Sex: Female
  Weight: 65 kg

DRUGS (10)
  1. NOXAFIL [Concomitant]
     Active Substance: POSACONAZOLE
     Indication: PRODUCT USED FOR UNKNOWN INDICATION
     Dosage: 300 MG, ONCE DAILY (3 TAB IN THE MORNING)
     Route: 065
  2. VIGAMOX [Concomitant]
     Active Substance: MOXIFLOXACIN HYDROCHLORIDE
     Indication: PRODUCT USED FOR UNKNOWN INDICATION
     Dosage: 5 MG/ML, 1 DROP, 4 TIMES DAILY (IN MORNING, AT NOON, IN EVENING AND NIGHT)
     Route: 065
  3. TOREM                              /01036501/ [Concomitant]
     Active Substance: TORSEMIDE
     Indication: PRODUCT USED FOR UNKNOWN INDICATION
     Dosage: 10 MG, ONCE DAILY (1 IN THE MORNING)
     Route: 065
  4. BISOPROLOL                         /00802602/ [Concomitant]
     Active Substance: BISOPROLOL
     Indication: PRODUCT USED FOR UNKNOWN INDICATION
     Dosage: 5 MG, ONCE DAILY (1 IN THE MORNING)
     Route: 065
  5. AZACITIDINE. [Suspect]
     Active Substance: AZACITIDINE
     Indication: ACUTE MYELOID LEUKAEMIA
     Dosage: UNK UNK, ONCE DAILY
     Route: 065
  6. AMLODIPINE                         /00972402/ [Concomitant]
     Active Substance: AMLODIPINE BESYLATE
     Indication: PRODUCT USED FOR UNKNOWN INDICATION
     Dosage: 5 MG, ONCE DAILY (IN THE EVENING)
     Route: 065
  7. ASP2215 [Suspect]
     Active Substance: GILTERITINIB
     Indication: ACUTE MYELOID LEUKAEMIA
     Route: 048
     Dates: start: 20190301, end: 20190413
  8. ACICLOVIR HEUMANN [Concomitant]
     Active Substance: ACYCLOVIR
     Indication: PRODUCT USED FOR UNKNOWN INDICATION
     Dosage: 200 MG, TWICE DAILY (1 IN THE MORNING AND 1 IN THE EVENING)
     Route: 065
  9. LYGAL N                            /00021201/ [Concomitant]
     Indication: PRODUCT USED FOR UNKNOWN INDICATION
     Dosage: UNK UNK, ONCE DAILY (IN MORNING)
     Route: 061
  10. UNACID PD                          /00903601/ [Concomitant]
     Active Substance: SULTAMICILLIN
     Indication: PRODUCT USED FOR UNKNOWN INDICATION
     Dosage: 375 MG, TWICE DAILY (1 IN THE MORNING AND 1 IN THE EVENING)
     Route: 048
     Dates: end: 20190424

REACTIONS (3)
  - Syncope [Recovered/Resolved]
  - Hypokalaemia [Not Recovered/Not Resolved]
  - Urinary tract infection [Recovered/Resolved]

NARRATIVE: CASE EVENT DATE: 20190413
